FAERS Safety Report 9448467 (Version 1)
Quarter: 2013Q3

REPORT INFORMATION
  Report Type: Spontaneous
  Country: US (occurrence: US)
  Receive Date: 20130808
  Receipt Date: 20130808
  Transmission Date: 20140515
  Serious: Yes (Hospitalization)
  Sender: FDA-Public Use
  Company Number: US-PFIZER INC-2013231155

PATIENT
  Age: 46 Year
  Sex: Female

DRUGS (5)
  1. LYRICA [Suspect]
     Indication: NEURALGIA
     Dosage: 200 MG, 3X/DAY
     Route: 048
     Dates: start: 2008
  2. ASPIRIN [Concomitant]
     Dosage: 81 MG, 1X/DAY
  3. BACLOFEN [Concomitant]
     Dosage: 20 MG, 3X/DAY
  4. PROTONIX [Concomitant]
     Dosage: UNK
  5. CITALOPRAM [Concomitant]
     Dosage: 20 MG, 1X/DAY

REACTIONS (1)
  - Appendicitis perforated [Recovering/Resolving]
